FAERS Safety Report 6389004-X (Version None)
Quarter: 2009Q4

REPORT INFORMATION
  Report Type: 
  Country: None (occurrence: None)
  Receive Date: 20091001
  Receipt Date: 20090917
  Transmission Date: 20100525
  Serious: Yes (Other)
  Sender: FDA-Public Use
  Company Number: 2009SP026631

PATIENT
  Age: 21 Year
  Sex: Male

DRUGS (2)
  1. CORICIDIN HBP COUGH + COLD (CHLORPHENIRAMINE MALEATE/DEXTROMETHORPHAN [Suspect]
     Dosage: 40 DF;PO
     Route: 048
  2. ROBITUSSIN [Suspect]
     Dosage: PO
     Route: 048

REACTIONS (12)
  - ABASIA [None]
  - ANXIETY [None]
  - COORDINATION ABNORMAL [None]
  - DECREASED ACTIVITY [None]
  - DYSSTASIA [None]
  - EYELID PTOSIS [None]
  - GAIT DISTURBANCE [None]
  - HEART RATE INCREASED [None]
  - HYPOKINESIA [None]
  - INCORRECT DOSE ADMINISTERED [None]
  - ROAD TRAFFIC ACCIDENT [None]
  - SOMNOLENCE [None]
